FAERS Safety Report 8224889-3 (Version None)
Quarter: 2012Q1

REPORT INFORMATION
  Report Type: 
  Country: None (occurrence: None)
  Receive Date: 20120321
  Receipt Date: 20120313
  Transmission Date: 20120608
  Serious: Yes (Hospitalization, Other)
  Sender: FDA-Public Use
  Company Number: US-ROCHE-1019493

PATIENT
  Sex: Male
  Weight: 102.15 kg

DRUGS (2)
  1. ACCUTANE [Suspect]
     Dates: start: 19900101
  2. ACCUTANE [Suspect]
     Indication: ACNE
     Dates: start: 19910501, end: 19911031

REACTIONS (5)
  - INJURY [None]
  - FRACTURE [None]
  - INFLAMMATORY BOWEL DISEASE [None]
  - COLITIS ULCERATIVE [None]
  - DEPRESSION [None]
